FAERS Safety Report 7941594-9 (Version None)
Quarter: 2011Q4

REPORT INFORMATION
  Report Type: 
  Country: None (occurrence: None)
  Receive Date: 20111128
  Receipt Date: 20111122
  Transmission Date: 20120403
  Serious: No
  Sender: FDA-Public Use
  Company Number: US-B.I. PHARMACEUTICALS,INC./RIDGEFIELD-2011-BP-26738BP

PATIENT
  Sex: Female

DRUGS (21)
  1. CYTOMEL [Concomitant]
     Indication: HYPOTHYROIDISM
     Dosage: 0.005 MG
     Route: 048
  2. NEURONTIN [Concomitant]
     Indication: NEURALGIA
     Dosage: 300 MG
     Route: 048
  3. LORATADINE [Concomitant]
     Indication: SEASONAL ALLERGY
  4. PRIMIDONE [Concomitant]
     Indication: TREMOR
     Dosage: 12.5 MG
     Route: 048
  5. AMIODARONE HCL [Concomitant]
     Indication: ATRIAL FIBRILLATION
     Route: 048
  6. VERAPAMIL [Concomitant]
     Indication: HYPERTENSION
     Route: 048
  7. SIMETHICONE [Concomitant]
     Indication: FLATULENCE
  8. ZINC [Concomitant]
     Indication: SUPPLEMENTATION THERAPY
  9. ASPIRIN [Concomitant]
     Indication: CARDIAC DISORDER
     Route: 048
  10. ACETAMINOPHEN [Concomitant]
     Indication: PAIN
     Route: 048
  11. RANEXA [Concomitant]
     Indication: CHEST PAIN
     Dosage: 500 MG
     Route: 048
  12. BENADRYL [Concomitant]
     Indication: INSOMNIA
     Route: 048
  13. LIPITOR [Concomitant]
     Indication: BLOOD CHOLESTEROL INCREASED
     Dosage: 20 MG
     Route: 048
  14. SPIRIVA [Suspect]
     Indication: CHRONIC OBSTRUCTIVE PULMONARY DISEASE
     Dosage: 18 MCG
     Route: 055
     Dates: start: 20100101
  15. AMLODIPINE [Concomitant]
     Indication: HYPERTENSION
     Route: 048
  16. PRILOSEC [Concomitant]
     Indication: GASTROOESOPHAGEAL REFLUX DISEASE
     Dosage: 20 MG
     Route: 048
  17. SYNTHROID [Concomitant]
     Indication: HYPOTHYROIDISM
     Dosage: 88 MCG
     Route: 048
  18. ARICEPT [Concomitant]
     Indication: AMNESIA
     Dosage: 10 MG
     Route: 048
  19. IRON [Concomitant]
     Indication: SUPPLEMENTATION THERAPY
     Route: 048
  20. CYMBALTA [Concomitant]
     Indication: DEPRESSION
     Route: 048
  21. PROBIOTIC [Concomitant]
     Indication: SUPPLEMENTATION THERAPY
     Route: 048

REACTIONS (2)
  - SWOLLEN TONGUE [None]
  - TREMOR [None]
